FAERS Safety Report 16375215 (Version 2)
Quarter: 2025Q3

REPORT INFORMATION
  Report Type: Spontaneous
  Country: EU (occurrence: EU)
  Receive Date: 20190531
  Receipt Date: 20250718
  Transmission Date: 20251021
  Serious: Yes (Hospitalization, Other)
  Sender: AUROBINDO
  Company Number: EU-AUROBINDO-AUR-APL-2019-029160

PATIENT
  Age: 22 Year
  Sex: Male

DRUGS (10)
  1. LANSOPRAZOLE [Suspect]
     Active Substance: LANSOPRAZOLE
     Indication: Hiccups
     Dosage: 15 MILLIGRAM, ONCE A DAY
     Route: 065
  2. LANSOPRAZOLE [Suspect]
     Active Substance: LANSOPRAZOLE
     Indication: Bipolar I disorder
  3. ARIPIPRAZOLE [Suspect]
     Active Substance: ARIPIPRAZOLE
     Indication: Bipolar I disorder
     Dosage: 30 MILLIGRAM, ONCE A DAY
     Route: 048
  4. ARIPIPRAZOLE [Suspect]
     Active Substance: ARIPIPRAZOLE
     Indication: Mania
  5. ARIPIPRAZOLE [Suspect]
     Active Substance: ARIPIPRAZOLE
     Indication: Bipolar I disorder
     Route: 030
  6. DELORAZEPAM [Concomitant]
     Active Substance: DELORAZEPAM
     Indication: Bipolar I disorder
     Dosage: 3 MILLIGRAM, ONCE A DAY
     Route: 030
  7. DELORAZEPAM [Concomitant]
     Active Substance: DELORAZEPAM
     Indication: Psychotic symptom
     Dosage: 1.5 MILLIGRAM, ONCE A DAY
     Route: 048
  8. DELORAZEPAM [Concomitant]
     Active Substance: DELORAZEPAM
     Indication: Mania
  9. LANSOPRAZOLE [Concomitant]
     Active Substance: LANSOPRAZOLE
     Indication: Mania
     Route: 065
  10. ASENAPINE [Concomitant]
     Active Substance: ASENAPINE
     Indication: Mania

REACTIONS (2)
  - Hiccups [Recovered/Resolved]
  - Off label use [Unknown]
